FAERS Safety Report 8085517-3 (Version None)
Quarter: 2012Q1

REPORT INFORMATION
  Report Type: 
  Country: None (occurrence: None)
  Receive Date: 20120128
  Receipt Date: 20110401
  Transmission Date: 20120608
  Serious: No
  Sender: FDA-Public Use
  Company Number: US-ABBOTT-11P-163-0711933-00

PATIENT
  Sex: Female
  Weight: 90.8 kg

DRUGS (7)
  1. VICODIN [Concomitant]
     Indication: PAIN
  2. VICODIN [Concomitant]
     Indication: RHEUMATOID ARTHRITIS
  3. FOLIC ACID [Concomitant]
     Indication: PRODUCT USED FOR UNKNOWN INDICATION
  4. HUMIRA [Suspect]
     Indication: RHEUMATOID ARTHRITIS
     Dates: start: 20110302
  5. LYRICA [Concomitant]
     Indication: FIBROMYALGIA
  6. HUMIRA [Suspect]
     Dates: start: 20110330
  7. METHOTREXATE [Concomitant]
     Indication: RHEUMATOID ARTHRITIS

REACTIONS (5)
  - HEADACHE [None]
  - FATIGUE [None]
  - SOMNOLENCE [None]
  - SINUSITIS [None]
  - ARTHRALGIA [None]
